FAERS Safety Report 21543439 (Version 3)
Quarter: 2024Q3

REPORT INFORMATION
  Report Type: Spontaneous
  Country: FR (occurrence: FR)
  Receive Date: 20221102
  Receipt Date: 20240816
  Transmission Date: 20241017
  Serious: Yes (Death, Life-Threatening, Other)
  Sender: AMGEN
  Company Number: FR-AMGEN-FRASP2022186188

PATIENT

DRUGS (1)
  1. PANITUMUMAB [Suspect]
     Active Substance: PANITUMUMAB
     Indication: Colorectal cancer metastatic
     Dosage: UNK
     Route: 065

REACTIONS (24)
  - Death [Fatal]
  - Respiratory failure [Fatal]
  - Colorectal cancer metastatic [Fatal]
  - Myocardial infarction [Fatal]
  - Sepsis [Fatal]
  - Sudden death [Fatal]
  - Aspartate aminotransferase increased [Unknown]
  - Alanine aminotransferase increased [Unknown]
  - Lipase increased [Unknown]
  - Colitis [Unknown]
  - Hypothyroidism [Unknown]
  - Anaemia [Unknown]
  - Fatigue [Unknown]
  - Pruritus [Unknown]
  - Rash [Unknown]
  - Diarrhoea [Unknown]
  - Autoimmune hepatitis [Unknown]
  - Ocular myasthenia [Unknown]
  - Encephalopathy [Unknown]
  - Acute kidney injury [Unknown]
  - Arthralgia [Unknown]
  - Therapy partial responder [Unknown]
  - Pyrexia [Unknown]
  - Asthenia [Unknown]
